FAERS Safety Report 4954049-0 (Version None)
Quarter: 2006Q1

REPORT INFORMATION
  Report Type: 
  Country: None (occurrence: None)
  Receive Date: 20060327
  Receipt Date: 20060320
  Transmission Date: 20060701
  Serious: Yes (Other)
  Sender: FDA-Public Use
  Company Number: PHMT2006CA00887

PATIENT
  Age: 56 Year
  Sex: Female

DRUGS (2)
  1. FAMVIR [Suspect]
     Indication: PHARYNGITIS
     Route: 048
     Dates: start: 20040901
  2. PROGRAF [Concomitant]
     Indication: BONE MARROW TRANSPLANT

REACTIONS (4)
  - CONDITION AGGRAVATED [None]
  - DYSPHAGIA [None]
  - PHARYNGEAL OEDEMA [None]
  - PHARYNGOLARYNGEAL PAIN [None]
